FAERS Safety Report 4503376-X (Version None)
Quarter: 2004Q4

REPORT INFORMATION
  Report Type: 
  Country: None (occurrence: None)
  Receive Date: 20041117
  Receipt Date: 20041111
  Transmission Date: 20050328
  Serious: Yes (Other)
  Sender: FDA-Public Use
  Company Number: US-GLAXOSMITHKLINE-A0533626A

PATIENT
  Sex: Female

DRUGS (1)
  1. PAXIL CR [Suspect]
     Indication: DRUG USE FOR UNKNOWN INDICATION
     Dosage: 50MG UNKNOWN
     Route: 048
     Dates: start: 20000101

REACTIONS (4)
  - DRUG WITHDRAWAL SYNDROME [None]
  - MOOD SWINGS [None]
  - PARAESTHESIA [None]
  - SUICIDAL IDEATION [None]
